FAERS Safety Report 13237971 (Version 1)
Quarter: 2017Q1

REPORT INFORMATION
  Report Type: Spontaneous
  Country: AR (occurrence: AR)
  Receive Date: 20170216
  Receipt Date: 20170216
  Transmission Date: 20170428
  Serious: Yes (Death)
  Sender: FDA-Public Use
  Company Number: AR-ACTELION-A-CH2017-149858

PATIENT
  Sex: Male

DRUGS (1)
  1. OPSUMIT [Suspect]
     Active Substance: MACITENTAN
     Indication: PULMONARY HYPERTENSION
     Dosage: UNK
     Route: 048
     Dates: start: 20150515

REACTIONS (1)
  - Death [Fatal]

NARRATIVE: CASE EVENT DATE: 20170130
